FAERS Safety Report 7133110-9 (Version None)
Quarter: 2010Q4

REPORT INFORMATION
  Report Type: 
  Country: None (occurrence: None)
  Receive Date: 20101117
  Receipt Date: 20101110
  Transmission Date: 20110411
  Serious: Yes (Other)
  Sender: FDA-Public Use
  Company Number: AX210-10-0611

PATIENT
  Age: 60 Year
  Sex: Female
  Weight: 59.8748 kg

DRUGS (2)
  1. ABRAXANE [Suspect]
     Indication: BREAST CANCER
     Dosage: (142 MG),INTRAVENOUS
     Route: 042
     Dates: start: 20100715, end: 20101014
  2. CARBOPLATIN [Suspect]
     Indication: BREAST CANCER
     Dosage: (159 MG),INTRAVENOUS
     Route: 042
     Dates: start: 20100715, end: 20101014

REACTIONS (9)
  - BLOOD CREATINE PHOSPHOKINASE INCREASED [None]
  - FATIGUE [None]
  - MOVEMENT DISORDER [None]
  - MUSCLE NECROSIS [None]
  - MUSCULAR WEAKNESS [None]
  - PARANEOPLASTIC SYNDROME [None]
  - POLYMYOSITIS [None]
  - RED BLOOD CELL SEDIMENTATION RATE INCREASED [None]
  - WALKING AID USER [None]
